FAERS Safety Report 9352226 (Version 1)
Quarter: 2013Q2

REPORT INFORMATION
  Report Type: Spontaneous
  Country: CH (occurrence: CH)
  Receive Date: 20130617
  Receipt Date: 20130617
  Transmission Date: 20140414
  Serious: Yes (Hospitalization)
  Sender: FDA-Public Use
  Company Number: CH-UCBSA-089310

PATIENT
  Age: 34 Year
  Sex: Female

DRUGS (6)
  1. KEPPRA [Suspect]
     Dosage: DAILY DOSE:2000 MG
  2. VALPROATE [Concomitant]
     Indication: EPILEPSY
     Dosage: DAILY DOSE 1000 MG
  3. LAMOTRIGINE [Concomitant]
     Indication: EPILEPSY
     Dosage: DAILY DOSE: 200 MG
  4. LAMOTRIGINE [Concomitant]
     Indication: EPILEPSY
     Dosage: DAILY DOSE: 400 MG
  5. CLOBAZAM [Concomitant]
     Indication: EPILEPSY
     Dosage: DAILY DOSE: 20 MG
  6. CLOBAZAM [Concomitant]
     Indication: EPILEPSY
     Dosage: DAILY DOSE: 10 MG

REACTIONS (4)
  - Convulsion [Recovering/Resolving]
  - Sedation [Recovering/Resolving]
  - Tremor [Recovered/Resolved]
  - Drug ineffective [Unknown]
